FAERS Safety Report 9487364 (Version 1)
Quarter: 2013Q3

REPORT INFORMATION
  Report Type: Spontaneous
  Country: US (occurrence: US)
  Receive Date: 20130829
  Receipt Date: 20130829
  Transmission Date: 20140515
  Serious: Yes (Death)
  Sender: FDA-Public Use
  Company Number: US-AMGEN-KDL270354

PATIENT
  Age: 83 Year
  Sex: Male

DRUGS (6)
  1. PROCRIT [Suspect]
     Indication: RENAL FAILURE CHRONIC
     Dosage: 20000 IU, QWK
     Route: 065
     Dates: start: 20070425
  2. EZETIMIBE/SIMVASTATIN [Concomitant]
     Dosage: UNK UNK, QD
  3. WARFARIN SODIUM [Concomitant]
     Dosage: 4.5 MG, QD
  4. INSULIN GLARGINE [Concomitant]
     Dosage: 20 IU, QD
  5. ATENOLOL [Concomitant]
     Dosage: 50 MG, QD
  6. HYDRALAZINE [Concomitant]
     Dosage: 81 MG, UNK

REACTIONS (1)
  - Death [Fatal]
